FAERS Safety Report 18978671 (Version 3)
Quarter: 2021Q2

REPORT INFORMATION
  Report Type: Spontaneous
  Country: TW (occurrence: TW)
  Receive Date: 20210308
  Receipt Date: 20210415
  Transmission Date: 20210717
  Serious: Yes (Other)
  Sender: FDA-Public Use
  Company Number: TW-AMGEN-TWNSP2021034766

PATIENT
  Age: 47 Year
  Sex: Male

DRUGS (12)
  1. ENBREL [Suspect]
     Active Substance: ETANERCEPT
     Indication: PSORIATIC ARTHROPATHY
     Dosage: 50 MG, WEEKLY (QW)
     Route: 058
     Dates: start: 20151120
  2. SULFASALAZINE. [Concomitant]
     Active Substance: SULFASALAZINE
     Dosage: 1 DF, 2X/DAY (BID)
     Route: 048
  3. CALCIPOTRIOL [Concomitant]
     Active Substance: CALCIPOTRIENE
     Dosage: 1 DF, 1X/DAY (QD)
     Route: 048
  4. FAMOTIDINE. [Concomitant]
     Active Substance: FAMOTIDINE
     Dosage: 1 DF, 2X/DAY (BID)
     Route: 048
  5. BENZOCAINE. [Concomitant]
     Active Substance: BENZOCAINE
     Dosage: UNK
  6. C.B. OINTMENT [Concomitant]
     Dosage: 5 G, AS NEEDED (PRN/EXT)
  7. DESLORATADINE. [Concomitant]
     Active Substance: DESLORATADINE
     Dosage: 1 DF, 1X/DAY (QD)
     Route: 048
  8. URSODEOXYCHOLIC ACID [Concomitant]
     Active Substance: URSODIOL
     Dosage: 1 DF, 2X/DAY
     Route: 048
  9. FLUOCINONIDE. [Concomitant]
     Active Substance: FLUOCINONIDE
     Dosage: 10 ML, 2X/DAY (BID/EXT)
  10. MOMETASONE FUROATE. [Concomitant]
     Active Substance: MOMETASONE FUROATE
     Dosage: UNK UNK, 2X/DAY (BID/EXT)
  11. SILYMARIN [SILYBUM MARIANUM] [Concomitant]
     Active Substance: DIETARY SUPPLEMENT\HERBALS\MILK THISTLE
     Dosage: 1 DF, 2X/DAY (BID)
     Route: 048
  12. LEFLUNOMIDE. [Concomitant]
     Active Substance: LEFLUNOMIDE
     Dosage: 1 DF (QOD)
     Route: 048

REACTIONS (2)
  - Psoriatic arthropathy [Not Recovered/Not Resolved]
  - Drug ineffective [Not Recovered/Not Resolved]
